FAERS Safety Report 23785819 (Version 2)
Quarter: 2024Q2

REPORT INFORMATION
  Report Type: Spontaneous
  Country: NP (occurrence: NP)
  Receive Date: 20240425
  Receipt Date: 20240614
  Transmission Date: 20240716
  Serious: Yes (Other)
  Sender: FDA-Public Use
  Company Number: NP-TAKEDA-2021TUS075959

PATIENT
  Age: 70 Year
  Sex: Male

DRUGS (2)
  1. ICLUSIG [Suspect]
     Active Substance: PONATINIB\PONATINIB HYDROCHLORIDE
     Indication: Chronic myeloid leukaemia
     Dosage: 30 MILLIGRAM
     Route: 065
  2. ICLUSIG [Suspect]
     Active Substance: PONATINIB\PONATINIB HYDROCHLORIDE
     Dosage: 45 MILLIGRAM
     Route: 065

REACTIONS (4)
  - Gallbladder operation [Unknown]
  - Gene mutation [Unknown]
  - Therapy non-responder [Unknown]
  - Drug resistance [Unknown]

NARRATIVE: CASE EVENT DATE: 20240312
